FAERS Safety Report 8032857-X (Version None)
Quarter: 2012Q1

REPORT INFORMATION
  Report Type: 
  Country: None (occurrence: None)
  Receive Date: 20120110
  Receipt Date: 20120107
  Transmission Date: 20120608
  Serious: No
  Sender: FDA-Public Use
  Company Number: US-BAYER-2012-002491

PATIENT

DRUGS (2)
  1. ALEVE (CAPLET) [Suspect]
  2. PERCOCET [Concomitant]

REACTIONS (1)
  - ADVERSE EVENT [None]
